FAERS Safety Report 16329200 (Version 1)
Quarter: 2019Q2

REPORT INFORMATION
  Report Type: Report from Study
  Country: None (occurrence: US)
  Receive Date: 20190520
  Receipt Date: 20190520
  Transmission Date: 20190711
  Serious: Yes (Other)
  Sender: FDA-Public Use
  Company Number: US-ABBVIE-19K-163-2782427-00

PATIENT
  Sex: Male

DRUGS (1)
  1. HUMIRA [Suspect]
     Active Substance: ADALIMUMAB
     Indication: RHEUMATOID ARTHRITIS
     Route: 058
     Dates: end: 2019

REACTIONS (5)
  - Anaemia [Unknown]
  - Joint injury [Not Recovered/Not Resolved]
  - Suicidal ideation [Unknown]
  - Depression [Recovering/Resolving]
  - Gastric ulcer [Not Recovered/Not Resolved]
